FAERS Safety Report 7629373-3 (Version None)
Quarter: 2011Q3

REPORT INFORMATION
  Report Type: 
  Country: None (occurrence: None)
  Receive Date: 20110722
  Receipt Date: 20110713
  Transmission Date: 20111222
  Serious: Yes (Hospitalization)
  Sender: FDA-Public Use
  Company Number: CA-JNJFOC-20110705869

PATIENT
  Sex: Female
  Weight: 66.23 kg

DRUGS (1)
  1. STELARA [Suspect]
     Indication: PSORIASIS
     Dates: start: 20101001

REACTIONS (2)
  - INTESTINAL POLYP [None]
  - BACTERIAL INFECTION [None]
